FAERS Safety Report 19074513 (Version 2)
Quarter: 2021Q3

REPORT INFORMATION
  Report Type: Report from Study
  Country: US (occurrence: US)
  Receive Date: 20210330
  Receipt Date: 20210921
  Transmission Date: 20211014
  Serious: Yes (Other)
  Sender: FDA-Public Use
  Company Number: US-UCBSA-2021013069

PATIENT
  Age: 31 Year
  Sex: Female
  Weight: 70.3 kg

DRUGS (1)
  1. CERTOLIZUMAB PEGOL [Suspect]
     Active Substance: CERTOLIZUMAB PEGOL
     Indication: PSORIASIS
     Dosage: 400 MILLIGRAM, EV 2 WEEKS(QOW)
     Dates: start: 202103, end: 202103

REACTIONS (4)
  - Maternal exposure during pregnancy [Unknown]
  - Abortion spontaneous [Not Recovered/Not Resolved]
  - Gestational diabetes [Unknown]
  - Ectopic pregnancy [Unknown]

NARRATIVE: CASE EVENT DATE: 202103
